FAERS Safety Report 5341882-9 (Version None)
Quarter: 2007Q2

REPORT INFORMATION
  Report Type: 
  Country: None (occurrence: None)
  Receive Date: 20070601
  Receipt Date: 20070521
  Transmission Date: 20071010
  Serious: Yes (Hospitalization)
  Sender: FDA-Public Use
  Company Number: US-ELI_LILLY_AND_COMPANY-US200705005382

PATIENT
  Age: 75 Year
  Sex: Female

DRUGS (4)
  1. FORTEO [Suspect]
     Indication: OSTEOPOROSIS
     Dosage: 20 UG, DAILY (1/D)
     Dates: start: 20061201, end: 20070519
  2. FORTEO [Suspect]
     Dosage: 20 UG, DAILY (1/D)
     Dates: start: 20070521
  3. ANTIHYPERTENSIVES [Concomitant]
     Dosage: UNK, UNK
     Dates: start: 20070101
  4. ANTIHYPERTENSIVES AND DIURETICS IN COMBINATIO [Concomitant]
     Dates: end: 20070101

REACTIONS (3)
  - BLOOD SODIUM DECREASED [None]
  - BRONCHITIS [None]
  - DEHYDRATION [None]
